FAERS Safety Report 4446662-4 (Version None)
Quarter: 2004Q3

REPORT INFORMATION
  Report Type: 
  Country: None (occurrence: None)
  Receive Date: 20040908
  Receipt Date: 20040827
  Transmission Date: 20050211
  Serious: Yes (Other)
  Sender: FDA-Public Use
  Company Number: 2004047168

PATIENT
  Sex: Female
  Weight: 65.7716 kg

DRUGS (6)
  1. NEURONTIN [Suspect]
     Indication: BACK PAIN
     Dosage: 900 MG (300 MG, 3 IN 1 D), ORAL
     Route: 048
  2. NAPROXEN [Concomitant]
  3. FLUOXETINE HYDROCHLORIDE (FLUOXDETINE HYDROCHLORIDE) [Concomitant]
  4. ALENDRONATE SODIUM [Concomitant]
  5. CALCIUM (CALCIUM) [Concomitant]
  6. LIBRAX [Concomitant]

REACTIONS (4)
  - ANAEMIA [None]
  - BLOOD IRON DECREASED [None]
  - PLATELET COUNT DECREASED [None]
  - WHITE BLOOD CELL COUNT DECREASED [None]
